FAERS Safety Report 8599298-8 (Version None)
Quarter: 2012Q3

REPORT INFORMATION
  Report Type: 
  Country: None (occurrence: None)
  Receive Date: 20120816
  Receipt Date: 20120401
  Transmission Date: 20120928
  Serious: No
  Sender: FDA-Public Use
  Company Number: US-AMGEN-USASP2012020838

PATIENT
  Sex: Female

DRUGS (2)
  1. NEULASTA [Suspect]
     Indication: CHEMOTHERAPY
     Dosage: UNK
  2. NEUPOGEN [Suspect]
     Indication: CHEMOTHERAPY
     Dosage: UNK

REACTIONS (4)
  - FEELING HOT [None]
  - ERYTHEMA [None]
  - MALAISE [None]
  - CHEST DISCOMFORT [None]
